FAERS Safety Report 15081873 (Version 1)
Quarter: 2018Q2

REPORT INFORMATION
  Report Type: Spontaneous
  Country: US (occurrence: US)
  Receive Date: 20180607
  Receipt Date: 20180607
  Transmission Date: 20180711
  Serious: Yes (Life-Threatening, Hospitalization, Disabling)
  Sender: FDA-Public Use
  Company Number: None

PATIENT
  Age: 57 Year
  Sex: Male
  Weight: 63 kg

DRUGS (1)
  1. ZYPREXA [Suspect]
     Active Substance: OLANZAPINE
     Indication: DEPRESSION
     Route: 048

REACTIONS (7)
  - Seizure [None]
  - Fall [None]
  - Quality of life decreased [None]
  - Brain injury [None]
  - Tooth loss [None]
  - Scar [None]
  - Rib fracture [None]

NARRATIVE: CASE EVENT DATE: 20160101
